FAERS Safety Report 7446056-3 (Version None)
Quarter: 2011Q2

REPORT INFORMATION
  Report Type: 
  Country: None (occurrence: None)
  Receive Date: 20110429
  Receipt Date: 20110421
  Transmission Date: 20111010
  Serious: Yes (Congenital Anomaly, Other)
  Sender: FDA-Public Use
  Company Number: US-PFIZER INC-2010128185

PATIENT
  Sex: Female
  Weight: 3.25 kg

DRUGS (2)
  1. ZOLOFT [Suspect]
     Indication: ANXIETY
  2. ZOLOFT [Suspect]
     Indication: DEPRESSION
     Dosage: 50 MG, DAILY
     Route: 064

REACTIONS (21)
  - RASH [None]
  - ATRIAL SEPTAL DEFECT [None]
  - LUNG HYPERINFLATION [None]
  - DILATATION VENTRICULAR [None]
  - UPPER RESPIRATORY TRACT INFECTION [None]
  - ARTHRALGIA [None]
  - EAR PAIN [None]
  - CONJUNCTIVITIS [None]
  - JOINT SPRAIN [None]
  - LEFT ATRIAL DILATATION [None]
  - HYPERSENSITIVITY [None]
  - DRUG EXPOSURE DURING PREGNANCY [None]
  - CARDIAC FAILURE CONGESTIVE [None]
  - TRICUSPID VALVE INCOMPETENCE [None]
  - VENTRICULAR SEPTAL DEFECT [None]
  - CARDIOMEGALY [None]
  - HYPERDYNAMIC LEFT VENTRICLE [None]
  - JAUNDICE [None]
  - INFLUENZA [None]
  - PNEUMONIA [None]
  - BRONCHITIS [None]
